FAERS Safety Report 5345124-X (Version None)
Quarter: 2007Q2

REPORT INFORMATION
  Report Type: 
  Country: None (occurrence: None)
  Receive Date: 20070601
  Receipt Date: 20070523
  Transmission Date: 20071010
  Serious: Yes (Hospitalization, Other)
  Sender: FDA-Public Use
  Company Number: 163-C5013-05070395

PATIENT
  Age: 76 Year
  Sex: Female
  Weight: 109.8 kg

DRUGS (3)
  1. CC-5013 (LENALIDOMIDE) (CAPSULES) [Suspect]
     Indication: MULTIPLE MYELOMA
     Dosage: 25 MG, QD ON DAYS 1-21, Q 28 DAYS, ORAL
     Route: 048
     Dates: start: 20050705, end: 20050721
  2. DEXAMETHASONE TAB [Suspect]
     Indication: MULTIPLE MYELOMA
     Dosage: 40 MG, QD ON DAYS 1, 8, 15 AND 22 Q 28 DAYS, ORAL
     Route: 048
     Dates: start: 20050705, end: 20050719
  3. CIPRO [Concomitant]

REACTIONS (7)
  - ANAEMIA [None]
  - ASTHENIA [None]
  - BLOOD UREA INCREASED [None]
  - FATIGUE [None]
  - GASTRIC ULCER [None]
  - HYPOCALCAEMIA [None]
  - PNEUMONIA [None]
